FAERS Safety Report 7892799-7 (Version None)
Quarter: 2011Q4

REPORT INFORMATION
  Report Type: 
  Country: None (occurrence: None)
  Receive Date: 20111104
  Receipt Date: 20111027
  Transmission Date: 20120403
  Serious: Yes (Hospitalization, Other)
  Sender: FDA-Public Use
  Company Number: US-US-EMD SERONO, INC.-7086256

PATIENT
  Sex: Female
  Weight: 91 kg

DRUGS (8)
  1. REBIF [Suspect]
  2. REBIF [Suspect]
     Indication: MULTIPLE SCLEROSIS
     Dates: start: 20110927, end: 20110929
  3. BENADRYL [Concomitant]
     Indication: URTICARIA
  4. FLUOXETINE HCL [Concomitant]
  5. PROVIGIL [Concomitant]
  6. VESICARE [Concomitant]
  7. ALEVE [Concomitant]
     Indication: PREMEDICATION
  8. ALPRAZOLAM [Concomitant]

REACTIONS (7)
  - RETCHING [None]
  - WHITE BLOOD CELL COUNT DECREASED [None]
  - SOMNOLENCE [None]
  - VOMITING [None]
  - LIVER FUNCTION TEST ABNORMAL [None]
  - INJECTION SITE PAIN [None]
  - THROAT TIGHTNESS [None]
